FAERS Safety Report 10550089 (Version 3)
Quarter: 2015Q3

REPORT INFORMATION
  Report Type: Report from Study
  Country: BR (occurrence: BR)
  Receive Date: 20141028
  Receipt Date: 20150915
  Transmission Date: 20151125
  Serious: Yes (Other)
  Sender: FDA-Public Use
  Company Number: PHHY2014BR140587

PATIENT
  Age: 86 Year
  Sex: Male
  Weight: 58 kg

DRUGS (7)
  1. ENALAPRIL [Concomitant]
     Active Substance: ENALAPRIL
     Indication: HYPERTENSION
     Dosage: 1 DF, QD
     Route: 065
     Dates: start: 201406
  2. ACLASTA [Suspect]
     Active Substance: ZOLEDRONIC ACID
     Route: 065
  3. ACLASTA [Suspect]
     Active Substance: ZOLEDRONIC ACID
     Indication: OSTEOPOROSIS
     Dosage: 5 MG, Q12MO
     Route: 042
     Dates: start: 20140526
  4. SONALGIN [Concomitant]
     Indication: ANGIOPLASTY
     Dosage: 1 DF, QD
     Route: 065
     Dates: start: 20140605
  5. SALOCOL [Concomitant]
     Indication: ARRHYTHMIA
     Dosage: 1 DF, QD
     Route: 065
     Dates: start: 2005
  6. CLOPIDOGREL [Concomitant]
     Active Substance: CLOPIDOGREL BISULFATE
     Indication: ANGIOPLASTY
     Dosage: 1 DF, QD
     Route: 065
     Dates: start: 20140605
  7. CLINFAR [Concomitant]
     Active Substance: SIMVASTATIN
     Indication: ANGIOPLASTY
     Dosage: 1 DF, QD
     Route: 065
     Dates: start: 20140605

REACTIONS (5)
  - Chest pain [Unknown]
  - Asthenia [Recovering/Resolving]
  - Malaise [Unknown]
  - Spinal fracture [Recovering/Resolving]
  - Fall [Recovering/Resolving]

NARRATIVE: CASE EVENT DATE: 20140903
